FAERS Safety Report 6640647-5 (Version None)
Quarter: 2010Q1

REPORT INFORMATION
  Report Type: 
  Country: None (occurrence: None)
  Receive Date: 20100318
  Receipt Date: 20100309
  Transmission Date: 20100710
  Serious: Yes (Disabling)
  Sender: FDA-Public Use
  Company Number: DE-GENENTECH-298559

PATIENT
  Age: 80 Year
  Sex: Female
  Weight: 45 kg

DRUGS (5)
  1. MABTHERA [Suspect]
     Indication: NON-HODGKIN'S LYMPHOMA
     Dosage: 375 MG/M2, UNK
     Route: 042
     Dates: start: 20100104, end: 20100104
  2. BENDAMUSTINE [Concomitant]
     Indication: NON-HODGKIN'S LYMPHOMA
     Dosage: UNK
  3. PARACETAMOL [Concomitant]
     Indication: NON-HODGKIN'S LYMPHOMA
     Dosage: 1000 MG, UNK
     Route: 048
  4. FENISTIL [Concomitant]
     Indication: NON-HODGKIN'S LYMPHOMA
     Dosage: 1 DF, UNK
     Route: 042
  5. PREDNISOLON [Concomitant]
     Indication: NON-HODGKIN'S LYMPHOMA
     Dosage: 100 MG, UNK
     Route: 048

REACTIONS (2)
  - BRONCHOSPASM [None]
  - HEARING IMPAIRED [None]
